FAERS Safety Report 4578771-3 (Version None)
Quarter: 2005Q1

REPORT INFORMATION
  Report Type: 
  Country: None (occurrence: None)
  Receive Date: 20050211
  Receipt Date: 20050131
  Transmission Date: 20050727
  Serious: Yes (Death)
  Sender: FDA-Public Use
  Company Number: JP-JNJFOC-20050201123

PATIENT
  Age: 53 Year
  Sex: Female

DRUGS (5)
  1. OFLOXACIN [Suspect]
     Route: 049
     Dates: start: 20050111, end: 20050112
  2. OFLOXACIN [Suspect]
     Route: 049
     Dates: start: 20050111, end: 20050112
  3. OFLOXACIN [Suspect]
     Indication: ABDOMINAL PAIN
     Route: 049
     Dates: start: 20050111, end: 20050112
  4. VOLTAREN [Concomitant]
     Route: 049
     Dates: start: 20050111
  5. PRIMPERAN INJ [Concomitant]
     Route: 042
     Dates: start: 20050115

REACTIONS (12)
  - ALANINE AMINOTRANSFERASE INCREASED [None]
  - ASPARTATE AMINOTRANSFERASE INCREASED [None]
  - DEATH [None]
  - DEPRESSED LEVEL OF CONSCIOUSNESS [None]
  - DISSEMINATED INTRAVASCULAR COAGULATION [None]
  - DIZZINESS [None]
  - HEADACHE [None]
  - LIVER DISORDER [None]
  - NAUSEA [None]
  - PLATELET COUNT DECREASED [None]
  - STATUS EPILEPTICUS [None]
  - WHITE BLOOD CELL COUNT DECREASED [None]
